FAERS Safety Report 8797465 (Version 1)
Quarter: 2012Q4

REPORT INFORMATION
  Report Type: 
  Country: US (occurrence: US)
  Receive Date: 20120920
  Receipt Date: 20120920
  Transmission Date: 20130627
  Serious: No
  Sender: FDA-Public Use
  Company Number: US-PFIZER INC-2012232469

PATIENT
  Sex: Female
  Weight: 52.61 kg

DRUGS (5)
  1. LYRICA [Suspect]
     Indication: FIBROMYALGIA
     Dosage: 150 mg, 2x/day
  2. WELLBUTRIN [Concomitant]
     Indication: ANXIETY
     Dosage: 150 mg, daily
  3. CITALOPRAM HYDROBROMIDE [Concomitant]
     Indication: ANXIETY
     Dosage: 20 mg, daily
  4. TRAMADOL [Concomitant]
     Indication: PAIN
     Dosage: one and a half tablet of 50 mg, daily
  5. TRAZODONE [Concomitant]
     Indication: PAIN
     Dosage: 50 mg, 2x/day

REACTIONS (1)
  - Memory impairment [Not Recovered/Not Resolved]
